FAERS Safety Report 8764828 (Version 1)
Quarter: 2012Q4

REPORT INFORMATION
  Report Type: Report from Study
  Country: US (occurrence: US)
  Receive Date: 20120831
  Receipt Date: 20120831
  Transmission Date: 20130627
  Serious: Yes (Hospitalization)
  Sender: FDA-Public Use
  Company Number: US-ROCHE-1060700

PATIENT
  Age: 71 Year
  Sex: Female
  Weight: 92.2 kg

DRUGS (3)
  1. AVASTIN [Suspect]
     Indication: NON-SMALL CELL LUNG CANCER
     Dosage: last dose prior to event was on 10/Sep/2010
     Route: 042
     Dates: start: 20100820
  2. CARBOPLATIN [Suspect]
     Indication: NON-SMALL CELL LUNG CANCER
     Dosage: 6 AUC
     Route: 042
     Dates: start: 20100820
  3. PACLITAXEL [Suspect]
     Indication: NON-SMALL CELL LUNG CANCER
     Route: 042
     Dates: start: 20100820

REACTIONS (3)
  - Cerebral infarction [Recovered/Resolved]
  - Spinal compression fracture [Not Recovered/Not Resolved]
  - Diastolic dysfunction [Unknown]
